FAERS Safety Report 26079832 (Version 1)
Quarter: 2025Q4

REPORT INFORMATION
  Report Type: Report from Study
  Country: EU (occurrence: EU)
  Receive Date: 20251123
  Receipt Date: 20251123
  Transmission Date: 20260118
  Serious: Yes (Hospitalization)
  Sender: ABBVIE
  Company Number: EU-ABBVIE-6553789

PATIENT
  Age: 78 Year
  Sex: Male

DRUGS (8)
  1. FOSCARBIDOPA\FOSLEVODOPA [Suspect]
     Active Substance: FOSCARBIDOPA\FOSLEVODOPA
     Indication: Parkinson^s disease
     Dosage: 240MG/ML OF FOSLEVODOPA + 12 MG/ML OF FOSCARBIDOPA, INITIAL DOSES: LOAD 1.3 ML; HIGH 0.43, BASE 0...
     Route: 058
     Dates: start: 20240731
  2. FOSCARBIDOPA\FOSLEVODOPA [Suspect]
     Active Substance: FOSCARBIDOPA\FOSLEVODOPA
     Dosage: 240 MG/ML OF FOSLEVODOPA + 12 MG/ML OF FOSCARBIDOPA, LOADING 1.3 ML; HIGH 0.50, BASE 0.44 AND LOW...
     Route: 058
  3. FOSCARBIDOPA\FOSLEVODOPA [Suspect]
     Active Substance: FOSCARBIDOPA\FOSLEVODOPA
     Dosage: DOSES: LOADING 1.3 ML; HIGH 0.47, BASE 0.44 AND LOW 0.32 ML/H; EXTRA 0.25 ML.
     Route: 058
  4. CHOLECALCIFEROL [Concomitant]
     Active Substance: CHOLECALCIFEROL
     Indication: Product used for unknown indication
     Dosage: CHOLECALCIFEROL 22400??BEFORE DUODOPA
  5. VENLAFAXINE [Concomitant]
     Active Substance: VENLAFAXINE HYDROCHLORIDE
     Indication: Product used for unknown indication
     Dosage: 1 TABLET AT BREAKFAST, BEFORE DUODOPA
  6. SOLIFENACIN\TAMSULOSIN [Concomitant]
     Active Substance: SOLIFENACIN\TAMSULOSIN
     Indication: Product used for unknown indication
     Dosage: BEFORE DUODOPA
  7. Efaxor [Concomitant]
     Indication: Product used for unknown indication
  8. Efaxor [Concomitant]
     Indication: Product used for unknown indication

REACTIONS (5)
  - Pancreatitis acute [Not Recovered/Not Resolved]
  - Depressed mood [Recovering/Resolving]
  - Akinesia [Recovering/Resolving]
  - Freezing phenomenon [Recovering/Resolving]
  - Diarrhoea [Not Recovered/Not Resolved]

NARRATIVE: CASE EVENT DATE: 20251101
